FAERS Safety Report 10329536 (Version 1)
Quarter: 2014Q3

REPORT INFORMATION
  Report Type: Spontaneous
  Country: CZ (occurrence: None)
  Receive Date: 20140717
  Receipt Date: 20140717
  Transmission Date: 20150326
  Serious: Yes (Life-Threatening, Hospitalization, Other)
  Sender: FDA-Public Use
  Company Number: SYM-2014-23086

PATIENT
  Age: 73 Year
  Sex: Female

DRUGS (2)
  1. ANOPYRIN (ACETYLSALICYLIC ACID) (100 MILLIGRAM) (ACETYLSALIC ACID) [Concomitant]
  2. DICLOFENAC SODIUM. [Suspect]
     Active Substance: DICLOFENAC SODIUM
     Indication: PAIN
     Route: 048
     Dates: start: 20140430, end: 20140505

REACTIONS (7)
  - Melaena [None]
  - Duodenal ulcer [None]
  - Gastric ulcer [None]
  - Haematemesis [None]
  - Erosive duodenitis [None]
  - Fatigue [None]
  - Anaemia [None]

NARRATIVE: CASE EVENT DATE: 20140501
